FAERS Safety Report 26052240 (Version 1)
Quarter: 2025Q4

REPORT INFORMATION
  Report Type: Spontaneous
  Country: EU (occurrence: EU)
  Receive Date: 20251117
  Receipt Date: 20251117
  Transmission Date: 20260118
  Serious: Yes (Life-Threatening, Hospitalization)
  Sender: ACCORD
  Company Number: None

PATIENT
  Age: 36 Year
  Sex: Female

DRUGS (5)
  1. DOCETAXEL [Suspect]
     Active Substance: DOCETAXEL
     Indication: Breast cancer
     Dosage: STRENGTH: 160 MG/8 ML, 75 MG/M2, 5 CYCLES, 1 VIAL OF 8 ML
     Dates: start: 20250430, end: 20250723
  2. CARBOPLATIN [Suspect]
     Active Substance: CARBOPLATIN
     Indication: Breast cancer
     Dosage: STRENGTH: 10 MG/ML, 5 AUC / CYCLE, 5 CYCLES, 1 VIAL OF 60 ML
     Dates: start: 20250430, end: 20250723
  3. PERJETA [Suspect]
     Active Substance: PERTUZUMAB
     Indication: Breast cancer
     Dosage: STRENGTH: 420 MG, 1 VIAL OF 14 ML, 1 VIAL EVERY 21 DAYS, 5 CYCLES
     Dates: start: 20250430, end: 20250723
  4. HERZUMA [Suspect]
     Active Substance: TRASTUZUMAB-PKRB
     Indication: Breast cancer
     Dosage: STRENGTH: 420 MG,8MG/KG EVERY 21 DAYS, 5 CYCLES, 1 VIAL
     Dates: start: 20250430, end: 20250723
  5. GOSERELIN [Concomitant]
     Active Substance: GOSERELIN
     Indication: Breast cancer
     Dosage: STRENGTH 3.6 MG, IMPLANT IN PRE-FILLED SYRINGE, 1 MENSUAL, 1 IMPLANT
     Dates: start: 20250422

REACTIONS (2)
  - Agranulocytosis [Recovered/Resolved]
  - Pancytopenia [Recovering/Resolving]

NARRATIVE: CASE EVENT DATE: 20250802
